FAERS Safety Report 22256081 (Version 1)
Quarter: 2023Q2

REPORT INFORMATION
  Report Type: Spontaneous
  Country: US (occurrence: US)
  Receive Date: 20230426
  Receipt Date: 20230426
  Transmission Date: 20230721
  Serious: No
  Sender: FDA-Public Use
  Company Number: US-PFIZER INC-PV202300026163

PATIENT
  Age: 69 Year
  Sex: Female
  Weight: 56.689 kg

DRUGS (13)
  1. XELJANZ XR [Suspect]
     Active Substance: TOFACITINIB CITRATE
     Indication: Rheumatoid arthritis
     Dosage: 11 MG, 2X/DAY
  2. XELJANZ XR [Suspect]
     Active Substance: TOFACITINIB CITRATE
     Dosage: 11 MG, 1X/DAY
     Dates: start: 20230208
  3. DULOXETINE [Concomitant]
     Active Substance: DULOXETINE
     Dosage: TWICE
  4. LIOTHYRONINE [Concomitant]
     Active Substance: LIOTHYRONINE
     Dosage: ONCE
  5. METHOTREXATE [Concomitant]
     Active Substance: METHOTREXATE
     Dosage: 6 TAB ONCE A WEEK
  6. ROSUVASTATIN [Concomitant]
     Active Substance: ROSUVASTATIN
     Dosage: ONCE
  7. LEVOTHYROXINE [Concomitant]
     Active Substance: LEVOTHYROXINE
     Dosage: ONCE
  8. AMLODIPINE [Concomitant]
     Active Substance: AMLODIPINE BESYLATE
     Dosage: ONCE
  9. TRAMADOL [Concomitant]
     Active Substance: TRAMADOL
     Dosage: 50 MG, AS NEEDED
  10. HYDROXYCHLOROQUINE [Concomitant]
     Active Substance: HYDROXYCHLOROQUINE
     Dosage: ONCE
  11. FOLIC ACID [Concomitant]
     Active Substance: FOLIC ACID
     Dosage: ONCE
  12. GABAPENTIN [Concomitant]
     Active Substance: GABAPENTIN
     Dosage: ONCE
  13. METOPROLOL [Concomitant]
     Active Substance: METOPROLOL
     Dosage: 2, DAILY

REACTIONS (3)
  - Change of bowel habit [Unknown]
  - Fatigue [Unknown]
  - Intentional product misuse [Unknown]
